FAERS Safety Report 19832996 (Version 2)
Quarter: 2021Q3

REPORT INFORMATION
  Report Type: Report from Study
  Country: US (occurrence: US)
  Receive Date: 20210915
  Receipt Date: 20210921
  Transmission Date: 20211014
  Serious: Yes (Hospitalization)
  Sender: FDA-Public Use
  Company Number: US-TAIHO ONCOLOGY  INC-EU-2021-02909

PATIENT
  Age: 73 Year
  Sex: Female
  Weight: 42.1 kg

DRUGS (5)
  1. AVASTIN [Concomitant]
     Active Substance: BEVACIZUMAB
     Dates: start: 20210714
  2. IRINOTECAN HYDROCHLORIDE. [Suspect]
     Active Substance: IRINOTECAN HYDROCHLORIDE
     Indication: COLON CANCER
     Dosage: CYCLE UNKNOWN (COMPLETED 3 CYCLES)
     Route: 042
     Dates: start: 20210714
  3. TAS?102 [Suspect]
     Active Substance: TIPIRACIL HYDROCHLORIDE\TRIFLURIDINE
     Indication: COLON CANCER
     Dosage: CYCLE UNKNOWN (COMPLETED 3 CYCLES)
     Route: 048
     Dates: start: 20210714
  4. AVASTIN [Concomitant]
     Active Substance: BEVACIZUMAB
     Dates: start: 20210811
  5. NEUPOGEN [Concomitant]
     Active Substance: FILGRASTIM
     Indication: NEUTROPENIA
     Dosage: STARTING ON DAY 9 OF TREATMENT CYCLE FOR 5 DAYS
     Dates: start: 20210819

REACTIONS (2)
  - Pain [Unknown]
  - Acute kidney injury [Unknown]

NARRATIVE: CASE EVENT DATE: 20210908
